FAERS Safety Report 16203634 (Version 1)
Quarter: 2019Q2

REPORT INFORMATION
  Report Type: Spontaneous
  Country: US (occurrence: US)
  Receive Date: 20190416
  Receipt Date: 20190416
  Transmission Date: 20190711
  Serious: Yes (Hospitalization, Other)
  Sender: FDA-Public Use
  Company Number: US-ROCHE-2303243

PATIENT
  Age: 78 Year
  Sex: Female
  Weight: 52.21 kg

DRUGS (17)
  1. ACTEMRA [Suspect]
     Active Substance: TOCILIZUMAB
     Indication: PRODUCT USED FOR UNKNOWN INDICATION
     Route: 065
  2. LISINOPRIL. [Concomitant]
     Active Substance: LISINOPRIL
     Dosage: ONGOING: YES
     Route: 065
  3. AMLODIPINE BESYLATE. [Concomitant]
     Active Substance: AMLODIPINE BESYLATE
     Dosage: ONGOING: YES
     Route: 065
     Dates: start: 1968
  4. ATENOLOL. [Concomitant]
     Active Substance: ATENOLOL
     Dosage: ONGOING: YES
     Route: 065
     Dates: start: 1968
  5. SIMVASTATIN. [Concomitant]
     Active Substance: SIMVASTATIN
     Dosage: ONGOING: YES
     Route: 065
  6. ENBREL [Concomitant]
     Active Substance: ETANERCEPT
     Indication: PRODUCT USED FOR UNKNOWN INDICATION
     Route: 065
  7. XELJANZ [Concomitant]
     Active Substance: TOFACITINIB CITRATE
     Indication: PAIN
     Dosage: ONGOING: YES
     Route: 048
  8. ECOTRIN [Concomitant]
     Active Substance: ASPIRIN
     Dosage: ONGOING: YES
     Route: 065
  9. LABETALOL HCL [Concomitant]
     Active Substance: LABETALOL HYDROCHLORIDE
     Route: 065
     Dates: end: 20111130
  10. ORENCIA [Concomitant]
     Active Substance: ABATACEPT
     Indication: PRODUCT USED FOR UNKNOWN INDICATION
     Route: 065
  11. XELJANZ [Concomitant]
     Active Substance: TOFACITINIB CITRATE
     Indication: RHEUMATOID ARTHRITIS
     Dosage: ONGOING: UNKNOWN
     Route: 048
     Dates: start: 2012
  12. LOVASTATIN. [Concomitant]
     Active Substance: LOVASTATIN
     Route: 065
     Dates: end: 20151114
  13. POTASSIUM CHLORIDE. [Concomitant]
     Active Substance: POTASSIUM CHLORIDE
     Dosage: ONGOING: YES
     Route: 065
  14. HYDROCHLOROTHIAZIDE. [Concomitant]
     Active Substance: HYDROCHLOROTHIAZIDE
     Dosage: ONGOING: YES
     Route: 065
  15. REMICADE [Concomitant]
     Active Substance: INFLIXIMAB
     Indication: PRODUCT USED FOR UNKNOWN INDICATION
     Route: 065
  16. METHOTREXATE. [Concomitant]
     Active Substance: METHOTREXATE
     Indication: PRODUCT USED FOR UNKNOWN INDICATION
     Route: 065
  17. ASPIRIN. [Concomitant]
     Active Substance: ASPIRIN

REACTIONS (20)
  - Sensitivity to weather change [Recovered/Resolved]
  - Blood potassium abnormal [Unknown]
  - Skin fissures [Recovered/Resolved]
  - Musculoskeletal stiffness [Recovered/Resolved]
  - Presyncope [Recovered/Resolved]
  - Drug hypersensitivity [Unknown]
  - Feeling hot [Unknown]
  - Palpitations [Recovered/Resolved]
  - Weight increased [Unknown]
  - Gastric disorder [Recovered/Resolved]
  - Swelling face [Unknown]
  - Pain [Unknown]
  - Dyspnoea [Recovered/Resolved]
  - Body height decreased [Unknown]
  - Drug ineffective [Unknown]
  - Wisdom teeth removal [Recovered/Resolved]
  - Diabetes mellitus [Not Recovered/Not Resolved]
  - Headache [Recovering/Resolving]
  - Cough [Unknown]
  - Hyperhidrosis [Recovered/Resolved]

NARRATIVE: CASE EVENT DATE: 20170907
